FAERS Safety Report 15302214 (Version 2)
Quarter: 2018Q4

REPORT INFORMATION
  Report Type: Report from Study
  Country: IT (occurrence: IT)
  Receive Date: 20180821
  Receipt Date: 20181012
  Transmission Date: 20190204
  Serious: Yes (Hospitalization)
  Sender: FDA-Public Use
  Company Number: IT-PFIZER INC-2018331998

PATIENT
  Age: 33 Year
  Sex: Male

DRUGS (2)
  1. FOLINA /00024201/ [Suspect]
     Active Substance: FOLIC ACID
     Dosage: 20 DF, TOTAL
     Route: 048
     Dates: start: 20180622, end: 20180622
  2. TORVAST [Suspect]
     Active Substance: ATORVASTATIN
     Dosage: 10 DF, TOTAL
     Route: 048
     Dates: start: 20180622, end: 20180622

REACTIONS (3)
  - Drug abuse [Recovering/Resolving]
  - Oesophagitis [Recovering/Resolving]
  - Intentional overdose [Recovering/Resolving]

NARRATIVE: CASE EVENT DATE: 20180622
